FAERS Safety Report 22218304 (Version 3)
Quarter: 2023Q4

REPORT INFORMATION
  Report Type: Spontaneous
  Country: PL (occurrence: None)
  Receive Date: 20230417
  Receipt Date: 20231026
  Transmission Date: 20240110
  Serious: Yes (Other)
  Sender: FDA-Public Use
  Company Number: PL-ROCHE-3331950

PATIENT
  Age: 54 Year
  Sex: Male

DRUGS (3)
  1. EMICIZUMAB [Suspect]
     Active Substance: EMICIZUMAB
     Indication: Haemophilia A without inhibitors
     Route: 058
     Dates: start: 201706
  2. EMICIZUMAB [Suspect]
     Active Substance: EMICIZUMAB
     Route: 058
     Dates: start: 202106
  3. RIBAVIRIN [Concomitant]
     Active Substance: RIBAVIRIN
     Dates: start: 2002

REACTIONS (1)
  - Haemarthrosis [Unknown]
